FAERS Safety Report 24026537 (Version 3)
Quarter: 2024Q3

REPORT INFORMATION
  Report Type: Report from Study
  Country: AT (occurrence: AT)
  Receive Date: 20240628
  Receipt Date: 20240710
  Transmission Date: 20241016
  Serious: No
  Sender: ROCHE
  Company Number: AT-ROCHE-3364752

PATIENT
  Age: 31 Year
  Sex: Male
  Weight: 80.0 kg

DRUGS (8)
  1. ALECTINIB [Suspect]
     Active Substance: ALECTINIB
     Indication: Lung cancer metastatic
     Dosage: MOST RECENT DOSE WAS ADMINISTERED ON 13/JUN/2023, 600 MG
     Route: 048
     Dates: start: 20220201
  2. PANTOPRAZOLE SODIUM [Concomitant]
     Active Substance: PANTOPRAZOLE SODIUM
     Indication: Pain
     Route: 048
     Dates: start: 20230613
  3. PANTOPRAZOLE SODIUM [Concomitant]
     Active Substance: PANTOPRAZOLE SODIUM
     Indication: Ascites
  4. NOVALGIN (AUSTRIA) [Concomitant]
     Indication: Pain
     Route: 048
  5. LORLATINIB [Concomitant]
     Active Substance: LORLATINIB
     Dates: start: 20230613, end: 202307
  6. ALIMTA [Concomitant]
     Active Substance: PEMETREXED DISODIUM
     Dates: start: 20230721
  7. CARBOPLATIN [Concomitant]
     Active Substance: CARBOPLATIN
     Dosage: 5.0 OTHER
     Dates: start: 20230721
  8. SUCRALAN [Concomitant]
     Indication: Ascites
     Route: 048
     Dates: start: 20230613

REACTIONS (1)
  - Abdominal pain upper [Not Recovered/Not Resolved]

NARRATIVE: CASE EVENT DATE: 20230607
